FAERS Safety Report 4459094-X (Version None)
Quarter: 2004Q3

REPORT INFORMATION
  Report Type: 
  Country: None (occurrence: None)
  Receive Date: 20040920
  Receipt Date: 20040920
  Transmission Date: 20050211
  Serious: Yes (Other)
  Sender: FDA-Public Use
  Company Number: None

PATIENT

DRUGS (1)
  1. NIFEDIPINE [Suspect]

REACTIONS (5)
  - DRUG INTOLERANCE [None]
  - DYSPNOEA [None]
  - PHARMACEUTICAL PRODUCT COMPLAINT [None]
  - SKIN IRRITATION [None]
  - STOMACH DISCOMFORT [None]
